FAERS Safety Report 11239024 (Version 1)
Quarter: 2015Q2

REPORT INFORMATION
  Report Type: Spontaneous
  Country: AT (occurrence: None)
  Receive Date: 20150630
  Receipt Date: 20150630
  Transmission Date: 20150821
  Serious: Yes (Hospitalization)
  Sender: FDA-Public Use
  Company Number: IPC201506-000393

PATIENT
  Age: 20 Year
  Sex: Female
  Weight: 40 kg

DRUGS (1)
  1. FUROSEMIDE (FUROSEMIDE) [Suspect]
     Active Substance: FUROSEMIDE

REACTIONS (17)
  - Pneumothorax traumatic [None]
  - Anaemia [None]
  - Cardiac failure [None]
  - Pneumonia [None]
  - Blood lactic acid increased [None]
  - Hypokalaemia [None]
  - Rhabdomyolysis [None]
  - Acute kidney injury [None]
  - Thrombocytopenia [None]
  - Blood pH decreased [None]
  - Generalised tonic-clonic seizure [None]
  - Drug abuse [None]
  - Pleural effusion [None]
  - Sudden cardiac death [None]
  - Ventricular fibrillation [None]
  - Blood chloride decreased [None]
  - Blood osmolarity decreased [None]
